FAERS Safety Report 15736672 (Version 3)
Quarter: 2019Q2

REPORT INFORMATION
  Report Type: Spontaneous
  Country: JP (occurrence: JP)
  Receive Date: 20181218
  Receipt Date: 20190404
  Transmission Date: 20190711
  Serious: Yes (Other)
  Sender: FDA-Public Use
  Company Number: JP-009507513-1812JPN002427J

PATIENT
  Age: 69 Year
  Sex: Female
  Weight: 49 kg

DRUGS (9)
  1. WYPAX [Concomitant]
     Active Substance: LORAZEPAM
     Dosage: 1 DOSAGE FORM, TID
     Route: 048
  2. ERELSA TABLETS 50MG [Suspect]
     Active Substance: ELBASVIR
     Indication: CHRONIC HEPATITIS C
     Dosage: 50 MILLIGRAM, QD
     Route: 048
     Dates: start: 20180911, end: 20181203
  3. NORVASC [Concomitant]
     Active Substance: AMLODIPINE BESYLATE
     Dosage: 1 DOSAGE FORM, QD
     Route: 048
  4. GRAZYNA TABLETS 50MG [Suspect]
     Active Substance: GRAZOPREVIR
     Indication: CHRONIC HEPATITIS C
     Dosage: 100 MILLIGRAM, QD
     Route: 048
     Dates: start: 20180911, end: 20181203
  5. URSO [Concomitant]
     Active Substance: URSODIOL
     Dosage: 2 DOSAGE FORM, TID
     Route: 048
  6. ECARD [Concomitant]
     Active Substance: CANDESARTAN CILEXETIL\HYDROCHLOROTHIAZIDE
     Dosage: 1 DOSAGE FORM, QD
     Route: 048
  7. ACETANOL [Concomitant]
     Dosage: 1 DOSAGE FORM, BID
     Route: 048
  8. TATHION [Concomitant]
     Active Substance: GLUTATHIONE
     Dosage: 1 DOSAGE FORM, TID
     Route: 048
  9. L-CARTIN [Concomitant]
     Active Substance: LEVOCARNITINE HYDROCHLORIDE
     Dosage: 1 DOSAGE FORM, QD
     Route: 048

REACTIONS (1)
  - Autoimmune hepatitis [Recovering/Resolving]

NARRATIVE: CASE EVENT DATE: 20181204
